FAERS Safety Report 13795585 (Version 1)
Quarter: 2017Q3

REPORT INFORMATION
  Report Type: Not Available
  Country: US (occurrence: US)
  Receive Date: 20170726
  Receipt Date: 20170726
  Transmission Date: 20171127
  Serious: No
  Sender: FDA-Public Use
  Company Number: US-NEUROCRINE BIOSCIENCES INC.-2017NBI00242

PATIENT
  Sex: Female

DRUGS (7)
  1. TRIHEXYPHENIDYL [Concomitant]
     Active Substance: TRIHEXYPHENIDYL
  2. INGREZZA [Suspect]
     Active Substance: VALBENAZINE
     Indication: TARDIVE DYSKINESIA
     Dates: start: 20170514
  3. TRILEPTAL [Concomitant]
     Active Substance: OXCARBAZEPINE
  4. ARMOUR THYROID [Concomitant]
     Active Substance: THYROID, PORCINE
  5. COGENTIN [Concomitant]
     Active Substance: BENZTROPINE MESYLATE
  6. LITHIUM. [Concomitant]
     Active Substance: LITHIUM
  7. NEURONTIN [Concomitant]
     Active Substance: GABAPENTIN

REACTIONS (7)
  - Dry mouth [Unknown]
  - Diarrhoea [Unknown]
  - Mental impairment [Unknown]
  - Headache [Unknown]
  - Aphasia [Unknown]
  - Asthenia [Unknown]
  - Depression [Unknown]
